FAERS Safety Report 8582041-6 (Version None)
Quarter: 2012Q3

REPORT INFORMATION
  Report Type: 
  Country: None (occurrence: None)
  Receive Date: 20120809
  Receipt Date: 20120806
  Transmission Date: 20120928
  Serious: Yes (Hospitalization)
  Sender: FDA-Public Use
  Company Number: FR-PFIZER INC-2012190136

PATIENT
  Age: 69 Year
  Sex: Male

DRUGS (6)
  1. LANSOPRAZOLE [Concomitant]
  2. TAZOBACTAM [Suspect]
     Indication: OSTEOMYELITIS
  3. TAZOBACTAM [Suspect]
     Indication: STAPHYLOCOCCAL INFECTION
     Dosage: 4 G, 1X/DAY
     Route: 042
     Dates: start: 20120622, end: 20120717
  4. NOVORAPID [Concomitant]
  5. LANTUS [Concomitant]
  6. ASPIRIN [Concomitant]

REACTIONS (1)
  - DRUG RASH WITH EOSINOPHILIA AND SYSTEMIC SYMPTOMS [None]
